FAERS Safety Report 19309471 (Version 1)
Quarter: 2021Q2

REPORT INFORMATION
  Report Type: Spontaneous
  Country: NL (occurrence: NL)
  Receive Date: 20210526
  Receipt Date: 20210526
  Transmission Date: 20210717
  Serious: Yes (Hospitalization)
  Sender: FDA-Public Use
  Company Number: NL-TEVA-2021-NL-1914333

PATIENT
  Age: 74 Year
  Sex: Female

DRUGS (8)
  1. CETOMACROGOL CREME / BRAND NAME NOT SPECIFIED [Concomitant]
     Dosage: THERAPY START AND END DATE: ASKU
  2. TIOTROPIUM INHALATIECAPSULE 13UG / BRAND NAME NOT SPECIFIED [Concomitant]
     Dosage: 13 MICROGRAM, THERAPY START AND END DATE: ASKU
  3. SALMETEROL/FLUTICASON AEROSOL 25/250UG/DO / AIRFLUSAL AEROSOL 25/250MC [Concomitant]
     Dosage: AEROSOL, 25/250 MICROGRAMS PER DOSE, THERAPY START AND END DATE: ASKU
  4. ALLOPURINOL TABLET 100MG / BRAND NAME NOT SPECIFIED [Concomitant]
     Active Substance: ALLOPURINOL
     Dosage: 100 MG, THERAPY START AND END DATE: ASKU
  5. ATORVASTATINE TABLET 20MG / BRAND NAME NOT SPECIFIED [Concomitant]
     Active Substance: ATORVASTATIN
     Dosage: 20 MG, THERAPY START AND END DATE: ASKU
  6. CLOPIDOGREL TABLET   75MG / BRAND NAME NOT SPECIFIED [Concomitant]
     Active Substance: CLOPIDOGREL BISULFATE
     Dosage: 75 MG, THERAPY START AND END DATE: ASKU
  7. DESLORATADINE TABLET 5MG / BRAND NAME NOT SPECIFIED [Concomitant]
     Dosage: 5 MG, THERAPY START AND END DATE: ASKU
  8. ENALAPRIL TABLET 20MG / BRAND NAME NOT SPECIFIED [Suspect]
     Active Substance: ENALAPRIL
     Indication: HYPERTENSION
     Dosage: 20 MILLIGRAM DAILY;
     Route: 065
     Dates: start: 2015, end: 20210505

REACTIONS (1)
  - Swollen tongue [Recovering/Resolving]

NARRATIVE: CASE EVENT DATE: 20210505
